FAERS Safety Report 5829058-X (Version None)
Quarter: 2008Q3

REPORT INFORMATION
  Report Type: 
  Country: None (occurrence: None)
  Receive Date: 20080731
  Receipt Date: 20080721
  Transmission Date: 20090109
  Serious: Yes (Hospitalization)
  Sender: FDA-Public Use
  Company Number: CH-TEVA-174749ISR

PATIENT
  Age: 62 Year
  Sex: Male

DRUGS (5)
  1. SIMVASTATIN [Interacting]
  2. CLARITHROMYCIN [Interacting]
  3. PREDNISONE [Suspect]
  4. MYCOPHENOLATE SODIUM [Suspect]
  5. CYCLOSPORINE [Interacting]

REACTIONS (3)
  - DRUG INTERACTION [None]
  - MYOPATHY [None]
  - RHODOCOCCUS INFECTION [None]
